FAERS Safety Report 6958441-4 (Version None)
Quarter: 2010Q3

REPORT INFORMATION
  Report Type: 
  Country: None (occurrence: None)
  Receive Date: 20100831
  Receipt Date: 20100823
  Transmission Date: 20110219
  Serious: Yes (Other)
  Sender: FDA-Public Use
  Company Number: US-AMGEN-QUU429537

PATIENT
  Sex: Male
  Weight: 60.8 kg

DRUGS (8)
  1. ENBREL [Suspect]
     Indication: RHEUMATOID ARTHRITIS
     Route: 058
     Dates: start: 20090401, end: 20100201
  2. UNSPECIFIED MEDICATION [Concomitant]
  3. GLIMEPIRIDE [Concomitant]
  4. ASPIRIN [Concomitant]
  5. BENAZEPRIL HYDROCHLORIDE [Concomitant]
  6. METFORMIN HCL [Concomitant]
  7. FOLIC ACID [Concomitant]
  8. INTERFERON [Concomitant]

REACTIONS (12)
  - BONE MARROW FAILURE [None]
  - CARDIAC MURMUR [None]
  - DIZZINESS [None]
  - ERYTHROPOIESIS ABNORMAL [None]
  - FATIGUE [None]
  - HYPERSPLENISM [None]
  - IMPAIRED HEALING [None]
  - JOINT STIFFNESS [None]
  - PANCYTOPENIA [None]
  - PSORIATIC ARTHROPATHY [None]
  - RENAL IMPAIRMENT [None]
  - VITAMIN B12 DEFICIENCY [None]
